FAERS Safety Report 8052968-2 (Version None)
Quarter: 2012Q1

REPORT INFORMATION
  Report Type: 
  Country: None (occurrence: None)
  Receive Date: 20120118
  Receipt Date: 20120111
  Transmission Date: 20120608
  Serious: Yes (Life-Threatening)
  Sender: FDA-Public Use
  Company Number: FR-SANOFI-AVENTIS-2012SA001950

PATIENT
  Age: 79 Year
  Sex: Male

DRUGS (2)
  1. LASIX [Suspect]
     Route: 048
     Dates: start: 20111001, end: 20111109
  2. CIPROFLOXACIN [Suspect]
     Route: 041
     Dates: start: 20111107, end: 20111109

REACTIONS (1)
  - RENAL FAILURE ACUTE [None]
